FAERS Safety Report 12250222 (Version 3)
Quarter: 2016Q4

REPORT INFORMATION
  Report Type: Spontaneous
  Country: GB (occurrence: GB)
  Receive Date: 20160408
  Receipt Date: 20161026
  Transmission Date: 20170207
  Serious: Yes (Hospitalization)
  Sender: FDA-Public Use
  Company Number: GB-ABBVIE-16P-167-1600840-00

PATIENT
  Age: 83 Year
  Sex: Male
  Weight: 75 kg

DRUGS (2)
  1. PROSTAP 3 DCS [Suspect]
     Active Substance: LEUPROLIDE ACETATE
     Indication: NEOPLASM MALIGNANT
     Dosage: 11.25 MG, UNK
     Route: 030
     Dates: start: 20151203
  2. ZOLADEX [Concomitant]
     Active Substance: GOSERELIN ACETATE
     Indication: PRODUCT USED FOR UNKNOWN INDICATION
     Dosage: 10.8 MG, UNK
     Dates: start: 20140707

REACTIONS (8)
  - Medication error [Unknown]
  - Urinary tract infection [Recovered/Resolved with Sequelae]
  - Pruritus [Recovered/Resolved with Sequelae]
  - Circulatory collapse [Recovered/Resolved]
  - Erythema [Recovered/Resolved with Sequelae]
  - Urticaria [Recovered/Resolved]
  - Hypotension [Recovered/Resolved]
  - Loss of consciousness [Recovered/Resolved]

NARRATIVE: CASE EVENT DATE: 20151203
